FAERS Safety Report 19884235 (Version 1)
Quarter: 2021Q3

REPORT INFORMATION
  Report Type: Spontaneous
  Country: SE (occurrence: SE)
  Receive Date: 20210927
  Receipt Date: 20210927
  Transmission Date: 20211014
  Serious: Yes (Hospitalization, Other)
  Sender: FDA-Public Use
  Company Number: SE-MACLEODS PHARMACEUTICALS US LTD-MAC2021032753

PATIENT

DRUGS (36)
  1. HALOPERIDOL. [Suspect]
     Active Substance: HALOPERIDOL
     Indication: SCHIZOPHRENIA
     Dosage: UNK; UP TO 10 MG/D
     Route: 065
     Dates: start: 2015
  2. MIRTAZAPINE. [Suspect]
     Active Substance: MIRTAZAPINE
     Indication: SCHIZOPHRENIA
     Dosage: 45 MILLIGRAM, QD; WK 23
     Route: 065
     Dates: start: 2020
  3. OLANZAPINE. [Concomitant]
     Active Substance: OLANZAPINE
     Dosage: UNK; 10?20 MG/DAY
     Route: 065
  4. DIAZEPAM. [Concomitant]
     Active Substance: DIAZEPAM
     Indication: ANXIETY
     Dosage: UNK
     Route: 065
  5. LORAZEPAM. [Concomitant]
     Active Substance: LORAZEPAM
     Indication: AGITATION
  6. HALOPERIDOL. [Suspect]
     Active Substance: HALOPERIDOL
     Dosage: 7.5 MILLIGRAM, QD; WK 28
     Route: 065
     Dates: start: 2020
  7. LORAZEPAM. [Concomitant]
     Active Substance: LORAZEPAM
     Indication: INTENTIONAL SELF-INJURY
  8. QUETIAPINE. [Suspect]
     Active Substance: QUETIAPINE
     Dosage: 300 MILLIGRAM, QD; WK 40
     Route: 065
     Dates: start: 2020
  9. CARIPRAZINE [Suspect]
     Active Substance: CARIPRAZINE
     Dosage: 6 MILLIGRAM, QD; ON DAY 9; WK 30
     Route: 065
     Dates: start: 2020
  10. CARIPRAZINE [Suspect]
     Active Substance: CARIPRAZINE
     Dosage: 6 MILLIGRAM, QD; WK 32
     Route: 065
     Dates: start: 2020
  11. CLONAZEPAM. [Concomitant]
     Active Substance: CLONAZEPAM
     Indication: INTENTIONAL SELF-INJURY
  12. LEVOMEPROMAZINE [Concomitant]
     Active Substance: LEVOMEPROMAZINE
     Indication: INTENTIONAL SELF-INJURY
  13. LEVOMEPROMAZINE [Concomitant]
     Active Substance: LEVOMEPROMAZINE
     Indication: AGITATION
  14. DIAZEPAM. [Concomitant]
     Active Substance: DIAZEPAM
     Indication: INTENTIONAL SELF-INJURY
  15. LORAZEPAM. [Concomitant]
     Active Substance: LORAZEPAM
     Indication: ANXIETY
     Dosage: UNK
     Route: 065
  16. ALIMEMAZINE [Concomitant]
     Active Substance: TRIMEPRAZINE
     Indication: ANXIETY
     Dosage: UNK
     Route: 065
  17. OLANZAPINE. [Concomitant]
     Active Substance: OLANZAPINE
     Dosage: UNK;  7.5?15 MG DURING EXACERBATIONS
     Route: 065
     Dates: start: 2018
  18. LEVOMEPROMAZINE [Concomitant]
     Active Substance: LEVOMEPROMAZINE
     Indication: ANXIETY
     Dosage: UNK
     Route: 065
  19. ALIMEMAZINE [Concomitant]
     Active Substance: TRIMEPRAZINE
     Indication: AGITATION
  20. RISPERIDONE. [Concomitant]
     Active Substance: RISPERIDONE
     Indication: SCHIZOPHRENIA
     Dosage: 6 MILLIGRAM, QD; WK 27
     Route: 048
     Dates: start: 2020
  21. QUETIAPINE. [Suspect]
     Active Substance: QUETIAPINE
     Dosage: 900 MILLIGRAM, QD; WK 34
     Route: 065
     Dates: start: 2020
  22. CARIPRAZINE [Suspect]
     Active Substance: CARIPRAZINE
     Indication: SCHIZOPHRENIA
     Dosage: 1.5 MILLIGRAM, QD; WK 30
     Route: 065
     Dates: start: 2020
  23. DIAZEPAM. [Concomitant]
     Active Substance: DIAZEPAM
     Indication: AGITATION
  24. QUETIAPINE. [Suspect]
     Active Substance: QUETIAPINE
     Dosage: 900 MILLIGRAM, QD; WK 33
     Route: 065
     Dates: start: 2020
  25. CLONAZEPAM. [Concomitant]
     Active Substance: CLONAZEPAM
     Indication: AGITATION
  26. OXAZEPAM. [Concomitant]
     Active Substance: OXAZEPAM
     Indication: ANXIETY
     Dosage: UNK
     Route: 065
  27. OXAZEPAM. [Concomitant]
     Active Substance: OXAZEPAM
     Indication: INTENTIONAL SELF-INJURY
  28. ALIMEMAZINE [Concomitant]
     Active Substance: TRIMEPRAZINE
     Indication: INTENTIONAL SELF-INJURY
  29. QUETIAPINE. [Suspect]
     Active Substance: QUETIAPINE
     Indication: SCHIZOPHRENIA
     Dosage: 900 MILLIGRAM, QD; WK 23
     Route: 065
     Dates: start: 2020
  30. QUETIAPINE. [Suspect]
     Active Substance: QUETIAPINE
     Dosage: 900 MILLIGRAM, QD; WK 30
     Route: 065
     Dates: start: 2020
  31. QUETIAPINE. [Suspect]
     Active Substance: QUETIAPINE
     Dosage: 900 MILLIGRAM, QD; WK 32
     Route: 065
     Dates: start: 2020
  32. HALOPERIDOL. [Suspect]
     Active Substance: HALOPERIDOL
     Dosage: UNK
     Route: 065
     Dates: start: 2018
  33. LITHIUM. [Suspect]
     Active Substance: LITHIUM
     Indication: SCHIZOPHRENIA
     Dosage: 168 MILLIGRAM, QD; WK 23
     Route: 065
     Dates: start: 2020
  34. OLANZAPINE. [Concomitant]
     Active Substance: OLANZAPINE
     Indication: HALLUCINATION, AUDITORY
     Dosage: UNK; UP TO 30 MG/D
     Route: 065
     Dates: start: 2018
  35. CLONAZEPAM. [Concomitant]
     Active Substance: CLONAZEPAM
     Indication: ANXIETY
     Dosage: UNK
     Route: 065
  36. OXAZEPAM. [Concomitant]
     Active Substance: OXAZEPAM
     Indication: AGITATION

REACTIONS (4)
  - Treatment noncompliance [Recovering/Resolving]
  - Akathisia [Recovering/Resolving]
  - Psychotic disorder [Recovering/Resolving]
  - Extrapyramidal disorder [Recovering/Resolving]
